FAERS Safety Report 4428830-0 (Version None)
Quarter: 2004Q3

REPORT INFORMATION
  Report Type: 
  Country: None (occurrence: None)
  Receive Date: 20040818
  Receipt Date: 20040809
  Transmission Date: 20050211
  Serious: Yes (Other)
  Sender: FDA-Public Use
  Company Number: PT-GLAXOSMITHKLINE-B0341957A

PATIENT
  Age: 12 Year
  Sex: Male
  Weight: 63 kg

DRUGS (1)
  1. AMOXICILLIN [Suspect]
     Indication: DRUG USE FOR UNKNOWN INDICATION
     Dosage: 500MG PER DAY
     Route: 048
     Dates: start: 20020101, end: 20020101

REACTIONS (5)
  - COUGH [None]
  - DYSPNOEA [None]
  - FACE OEDEMA [None]
  - URTICARIA GENERALISED [None]
  - URTICARIA PAPULAR [None]
